FAERS Safety Report 14670234 (Version 1)
Quarter: 2018Q1

REPORT INFORMATION
  Report Type: Other
  Country: FI (occurrence: FI)
  Receive Date: 20180322
  Receipt Date: 20180322
  Transmission Date: 20180509
  Serious: Yes (Hospitalization)
  Sender: FDA-Public Use
  Company Number: FI-CELLTRION INC.-2018FI018654

PATIENT

DRUGS (4)
  1. PREDNISOLON                        /00016201/ [Concomitant]
     Active Substance: PREDNISOLONE
     Indication: POLYCHONDRITIS
     Route: 048
  2. REMSIMA [Suspect]
     Active Substance: INFLIXIMAB
     Indication: POLYCHONDRITIS
     Dosage: 300 MG, TID
     Route: 042
     Dates: start: 20171024, end: 20171024
  3. REMSIMA [Suspect]
     Active Substance: INFLIXIMAB
     Dosage: 300 MG, TID
     Route: 042
     Dates: start: 20171205, end: 20171205
  4. METOJECT PEN [Concomitant]
     Active Substance: METHOTREXATE
     Indication: POLYCHONDRITIS
     Dosage: UNK
     Route: 058
     Dates: start: 2015, end: 20171226

REACTIONS (3)
  - Brain abscess [Not Recovered/Not Resolved]
  - Listeria sepsis [Not Recovered/Not Resolved]
  - Off label use [Not Recovered/Not Resolved]

NARRATIVE: CASE EVENT DATE: 20171226
